FAERS Safety Report 25065146 (Version 4)
Quarter: 2025Q2

REPORT INFORMATION
  Report Type: Spontaneous
  Country: CA (occurrence: CA)
  Receive Date: 20250311
  Receipt Date: 20250619
  Transmission Date: 20250717
  Serious: Yes (Death, Life-Threatening, Hospitalization, Disabling, Congenital Anomaly, Other)
  Sender: SANDOZ
  Company Number: CA-002147023-NVSC2025CA039388

PATIENT
  Age: 43 Year
  Sex: Female
  Weight: 96 kg

DRUGS (19)
  1. CANDESARTAN [Suspect]
     Active Substance: CANDESARTAN
     Indication: Migraine
     Route: 048
  2. CANDESARTAN [Suspect]
     Active Substance: CANDESARTAN
     Indication: Rheumatoid arthritis
     Route: 065
  3. DICLOFENAC SODIUM [Suspect]
     Active Substance: DICLOFENAC SODIUM
     Route: 065
  4. DICLOFENAC SODIUM [Suspect]
     Active Substance: DICLOFENAC SODIUM
     Route: 065
  5. DICLOFENAC SODIUM [Suspect]
     Active Substance: DICLOFENAC SODIUM
     Route: 065
  6. DICLOFENAC SODIUM [Suspect]
     Active Substance: DICLOFENAC SODIUM
     Route: 065
  7. DICLOFENAC SODIUM [Suspect]
     Active Substance: DICLOFENAC SODIUM
     Indication: Rheumatoid arthritis
     Route: 065
  8. DICLOFENAC SODIUM [Suspect]
     Active Substance: DICLOFENAC SODIUM
     Route: 065
  9. ERENUMAB [Suspect]
     Active Substance: ERENUMAB
     Indication: Migraine
     Route: 065
  10. PANTOPRAZOLE [Suspect]
     Active Substance: PANTOPRAZOLE
     Indication: Product used for unknown indication
     Route: 065
  11. TOPICORT [Suspect]
     Active Substance: DESOXIMETASONE
     Route: 065
  12. TOPICORT [Suspect]
     Active Substance: DESOXIMETASONE
     Route: 065
  13. TOPICORT [Suspect]
     Active Substance: DESOXIMETASONE
     Route: 065
  14. TOPICORT [Suspect]
     Active Substance: DESOXIMETASONE
     Route: 065
  15. TOPICORT [Suspect]
     Active Substance: DESOXIMETASONE
     Indication: Product used for unknown indication
     Dosage: 3 MG, QD
     Route: 065
  16. TOPIRAMATE [Suspect]
     Active Substance: TOPIRAMATE
     Dosage: 1 MG, QD
     Route: 065
  17. TOPIRAMATE [Suspect]
     Active Substance: TOPIRAMATE
     Indication: Product used for unknown indication
     Dosage: 3 MG, QD
     Route: 065
  18. TRIAMCINOLONE [Suspect]
     Active Substance: TRIAMCINOLONE
     Indication: Product used for unknown indication
     Route: 065
  19. DICLOFENAC DIETHYLAMINE [Suspect]
     Active Substance: DICLOFENAC DIETHYLAMINE
     Indication: Product used for unknown indication
     Route: 065

REACTIONS (32)
  - Neck pain [Fatal]
  - Drug hypersensitivity [Fatal]
  - Drug intolerance [Fatal]
  - Gait inability [Fatal]
  - Intentional product use issue [Fatal]
  - Muscle injury [Fatal]
  - Muscle spasms [Fatal]
  - Musculoskeletal pain [Fatal]
  - Normal newborn [Fatal]
  - Contraindicated product administered [Fatal]
  - Infusion site reaction [Fatal]
  - Onychomadesis [Fatal]
  - Systemic lupus erythematosus [Fatal]
  - Stomatitis [Fatal]
  - Taste disorder [Fatal]
  - Psoriatic arthropathy [Fatal]
  - Type 2 diabetes mellitus [Fatal]
  - Peripheral venous disease [Fatal]
  - Rheumatoid arthritis [Fatal]
  - Peripheral swelling [Fatal]
  - Paraesthesia [Fatal]
  - Synovitis [Fatal]
  - Osteoarthritis [Fatal]
  - Urticaria [Fatal]
  - Wheezing [Fatal]
  - Wound infection [Fatal]
  - Treatment failure [Fatal]
  - Therapeutic product effect incomplete [Fatal]
  - Therapeutic product effect decreased [Fatal]
  - Product use issue [Fatal]
  - Product use in unapproved indication [Fatal]
  - Product quality issue [Fatal]
